FAERS Safety Report 8303822 (Version 2)
Quarter: 2012Q4

REPORT INFORMATION
  Report Type: 
  Country: US (occurrence: US)
  Receive Date: 20111221
  Receipt Date: 20120915
  Transmission Date: 20130627
  Serious: Yes (Death, Hospitalization, Other)
  Sender: FDA-Public Use
  Company Number: US-ACCORD-011090

PATIENT
  Age: 77 Year
  Sex: Female

DRUGS (2)
  1. TACROLIMUS [Suspect]
     Indication: RENAL TRANSPLANT
  2. CYCQSLOSPORINE [Concomitant]
     Indication: RENAL TRANSPLANT

REACTIONS (5)
  - Cardiopulmonary failure [Fatal]
  - Organising pneumonia [Recovering/Resolving]
  - Pneumonia herpes viral [Recovering/Resolving]
  - Cardiac failure congestive [Not Recovered/Not Resolved]
  - Diarrhoea [Recovered/Resolved]
